FAERS Safety Report 6425063-3 (Version None)
Quarter: 2009Q4

REPORT INFORMATION
  Report Type: 
  Country: None (occurrence: None)
  Receive Date: 20091103
  Receipt Date: 20091028
  Transmission Date: 20100525
  Serious: Yes (Hospitalization)
  Sender: FDA-Public Use
  Company Number: RU-ROCHE-665280

PATIENT
  Sex: Female
  Weight: 56 kg

DRUGS (3)
  1. CAPECITABINE [Suspect]
     Dosage: 1- 14 DAYS
     Route: 048
     Dates: start: 20090528, end: 20090924
  2. BEVACIZUMAB [Suspect]
     Route: 042
     Dates: start: 20090528, end: 20091001
  3. TRASTUZUMAB [Suspect]
     Route: 042
     Dates: start: 20090528, end: 20091001

REACTIONS (2)
  - CARDIAC FAILURE [None]
  - RENAL FAILURE [None]
